FAERS Safety Report 18681161 (Version 2)
Quarter: 2021Q1

REPORT INFORMATION
  Report Type: Spontaneous
  Country: US (occurrence: US)
  Receive Date: 20201229
  Receipt Date: 20210104
  Transmission Date: 20210419
  Serious: Yes (Death, Hospitalization, Other)
  Sender: FDA-Public Use
  Company Number: US-PFIZER INC-2020385388

PATIENT
  Age: 86 Year
  Sex: Male
  Weight: 72.57 kg

DRUGS (3)
  1. KEYTRUDA [Concomitant]
     Active Substance: PEMBROLIZUMAB
     Indication: RENAL CANCER
     Dosage: UNK (INFUSION BASED ADMINISTERED)
     Dates: start: 20200929
  2. INLYTA [Suspect]
     Active Substance: AXITINIB
     Indication: RENAL CANCER
     Dosage: 3 MG, 2X/DAY (BID?TWICE A DAY)
  3. INLYTA [Suspect]
     Active Substance: AXITINIB
     Dosage: 6 MG, 1X/DAY (6MG A DAY, 180 COUNT IN PRESCRIPTION, 3 IN THE MORNING AND 3 AT NIGHT)
     Dates: start: 20201006, end: 20201125

REACTIONS (8)
  - Injury [Unknown]
  - Diarrhoea [Unknown]
  - Cardiac arrest [Fatal]
  - Chills [Unknown]
  - Asthenia [Unknown]
  - Fistula [Fatal]
  - Urinary tract infection [Unknown]
  - Intentional product misuse [Unknown]

NARRATIVE: CASE EVENT DATE: 2020
